FAERS Safety Report 15437112 (Version 2)
Quarter: 2018Q4

REPORT INFORMATION
  Report Type: Spontaneous
  Country: US (occurrence: US)
  Receive Date: 20180927
  Receipt Date: 20181231
  Transmission Date: 20190204
  Serious: No
  Sender: FDA-Public Use
  Company Number: US-CLOVIS ONCOLOGY-CLO-2018-000813

PATIENT
  Age: 46 Year
  Sex: Female
  Weight: 48.73 kg

DRUGS (7)
  1. RUBRACA [Suspect]
     Active Substance: RUCAPARIB CAMSYLATE
     Dosage: 600 MG, UNK
     Route: 065
  2. MULTIVITAMIN                       /07504101/ [Concomitant]
     Active Substance: VITAMINS
     Indication: PRODUCT USED FOR UNKNOWN INDICATION
     Dosage: UNK
     Dates: start: 20171103
  3. RUBRACA [Suspect]
     Active Substance: RUCAPARIB CAMSYLATE
     Dosage: 600 MG, UNK
     Dates: start: 20171106
  4. ADVIL [Concomitant]
     Active Substance: IBUPROFEN
     Indication: PRODUCT USED FOR UNKNOWN INDICATION
     Dosage: UNK
     Dates: start: 20171103
  5. FISH OIL [Concomitant]
     Active Substance: FISH OIL
     Indication: PRODUCT USED FOR UNKNOWN INDICATION
     Dosage: UNK
     Dates: start: 20171103
  6. RUBRACA [Suspect]
     Active Substance: RUCAPARIB CAMSYLATE
     Indication: NEOPLASM
     Dosage: UNK
     Dates: start: 20171103
  7. RUBRACA [Suspect]
     Active Substance: RUCAPARIB CAMSYLATE
     Dosage: 2 BID
     Route: 048
     Dates: start: 20181010

REACTIONS (7)
  - Product dose omission [Unknown]
  - Fatigue [Unknown]
  - Dysgeusia [Unknown]
  - Pruritus [Not Recovered/Not Resolved]
  - Stomatitis [Unknown]
  - Nausea [Unknown]
  - Off label use [Unknown]

NARRATIVE: CASE EVENT DATE: 20171103
